FAERS Safety Report 6770540-9 (Version None)
Quarter: 2010Q2

REPORT INFORMATION
  Report Type: 
  Country: None (occurrence: None)
  Receive Date: 20100615
  Receipt Date: 20100608
  Transmission Date: 20101027
  Serious: Yes (Other)
  Sender: FDA-Public Use
  Company Number: JP-BAYER-201012419BYL

PATIENT
  Age: 68 Year
  Sex: Female
  Weight: 69 kg

DRUGS (9)
  1. AVELOX [Suspect]
     Indication: BRONCHITIS
     Dosage: TOTAL DAILY DOSE: 400 MG  UNIT DOSE: 400 MG
     Route: 048
     Dates: start: 20100517, end: 20100517
  2. PAMILCON [Concomitant]
     Indication: TYPE 2 DIABETES MELLITUS
     Dosage: TOTAL DAILY DOSE: 3.75 MG  UNIT DOSE: 2.5 MG
     Route: 048
     Dates: start: 20061224
  3. BASEN [Concomitant]
     Indication: TYPE 2 DIABETES MELLITUS
     Dosage: TOTAL DAILY DOSE: 0.6 MG  UNIT DOSE: 0.2 MG
     Route: 048
     Dates: start: 20061224
  4. BAYASPIRIN [Concomitant]
     Indication: CEREBRAL INFARCTION
     Dosage: TOTAL DAILY DOSE: 100 MG  UNIT DOSE: 100 MG
     Route: 048
     Dates: start: 20061224
  5. DIOVAN [Concomitant]
     Indication: HYPERTENSION
     Dosage: TOTAL DAILY DOSE: 80 MG  UNIT DOSE: 80 MG
     Route: 048
     Dates: start: 20061224
  6. CRESTOR [Concomitant]
     Indication: HYPERLIPIDAEMIA
     Dosage: TOTAL DAILY DOSE: 2.5 MG  UNIT DOSE: 2.5 MG
     Route: 048
     Dates: start: 20090331
  7. LOXONIN [Concomitant]
     Route: 048
  8. MUCOBROTIN [Concomitant]
     Route: 048
  9. MUCOSTA [Concomitant]
     Route: 048

REACTIONS (1)
  - LOSS OF CONSCIOUSNESS [None]
